FAERS Safety Report 8271301-4 (Version None)
Quarter: 2012Q2

REPORT INFORMATION
  Report Type: 
  Country: None (occurrence: None)
  Receive Date: 20120410
  Receipt Date: 20120406
  Transmission Date: 20120825
  Serious: Yes (Death)
  Sender: FDA-Public Use
  Company Number: US-SANOFI-AVENTIS-2012SA024328

PATIENT

DRUGS (8)
  1. DOCETAXEL [Suspect]
     Indication: BREAST CANCER
     Route: 065
     Dates: start: 20100601
  2. WARFARIN SODIUM [Concomitant]
  3. ALGINIC ACID [Concomitant]
  4. CYCLOPHOSPHAMIDE [Suspect]
     Indication: BREAST CANCER
     Route: 065
     Dates: start: 20100601
  5. LORAZEPAM [Concomitant]
  6. LISINOPRIL [Concomitant]
  7. BEVACIZUMAB [Suspect]
     Indication: BREAST CANCER
     Route: 065
     Dates: start: 20100601
  8. RESTORIL [Concomitant]

REACTIONS (1)
  - CARDIAC FAILURE [None]
